FAERS Safety Report 8196916-3 (Version None)
Quarter: 2012Q1

REPORT INFORMATION
  Report Type: 
  Country: None (occurrence: None)
  Receive Date: 20120309
  Receipt Date: 20120307
  Transmission Date: 20120608
  Serious: No
  Sender: FDA-Public Use
  Company Number: US-PFIZER INC-2012061518

PATIENT
  Sex: Male
  Weight: 74.83 kg

DRUGS (1)
  1. ADVIL PM [Suspect]
     Indication: INSOMNIA
     Dosage: 2 CAPLETS ONCE A DAY
     Route: 048
     Dates: start: 20120306, end: 20120306

REACTIONS (3)
  - POLLAKIURIA [None]
  - DYSURIA [None]
  - INSOMNIA [None]
